FAERS Safety Report 15352095 (Version 1)
Quarter: 2018Q3

REPORT INFORMATION
  Report Type: Spontaneous
  Country: FR (occurrence: FR)
  Receive Date: 20180905
  Receipt Date: 20180905
  Transmission Date: 20181010
  Serious: Yes (Life-Threatening, Hospitalization, Other)
  Sender: FDA-Public Use
  Company Number: FR-SA-2018SA246911

PATIENT
  Age: 82 Year
  Sex: Female

DRUGS (8)
  1. APROVEL FILM?COATED TABS 75 MG [Suspect]
     Active Substance: IRBESARTAN
     Indication: HYPERTENSION
     Dosage: 150 MG, QD
     Route: 048
     Dates: start: 201801, end: 20180403
  2. AMOXICILLIN. [Suspect]
     Active Substance: AMOXICILLIN
     Indication: ERYSIPELAS
     Dosage: 2000 MG, QD
     Route: 048
     Dates: start: 20180327, end: 20180329
  3. PYOSTACINE [Concomitant]
     Active Substance: PRISTINAMYCIN
  4. BISOPROLOL FUMERATE [Concomitant]
     Active Substance: BISOPROLOL FUMARATE
  5. DIFFU K [Concomitant]
     Active Substance: POTASSIUM CHLORIDE
  6. LASILIX [FUROSEMIDE] [Concomitant]
  7. FUMAFER [Concomitant]
     Active Substance: FERROUS FUMARATE
  8. INEXIUM [ESOMEPRAZOLE MAGNESIUM] [Concomitant]

REACTIONS (1)
  - Drug reaction with eosinophilia and systemic symptoms [Recovered/Resolved]

NARRATIVE: CASE EVENT DATE: 20180329
